FAERS Safety Report 14320105 (Version 1)
Quarter: 2017Q4

REPORT INFORMATION
  Report Type: Spontaneous
  Country: US (occurrence: US)
  Receive Date: 20171222
  Receipt Date: 20171222
  Transmission Date: 20180321
  Serious: Yes (Hospitalization)
  Sender: FDA-Public Use
  Company Number: None

PATIENT
  Age: 77 Year
  Sex: Female

DRUGS (3)
  1. LETAIRIS [Suspect]
     Active Substance: AMBRISENTAN
     Indication: CONNECTIVE TISSUE DISORDER
     Route: 048
     Dates: start: 20170812
  2. LETAIRIS [Suspect]
     Active Substance: AMBRISENTAN
     Indication: HEART DISEASE CONGENITAL
     Route: 048
     Dates: start: 20170812
  3. LETAIRIS [Suspect]
     Active Substance: AMBRISENTAN
     Indication: PULMONARY ARTERIAL HYPERTENSION
     Route: 048
     Dates: start: 20170812

REACTIONS (10)
  - Abdominal pain [None]
  - Ascites [None]
  - Abdominal distension [None]
  - Diarrhoea [None]
  - Abdominal discomfort [None]
  - Dyspnoea [None]
  - Sleep disorder [None]
  - Hypertension [None]
  - Pericardial effusion [None]
  - Blood pressure increased [None]

NARRATIVE: CASE EVENT DATE: 20171215
